FAERS Safety Report 4608925-9 (Version None)
Quarter: 2005Q1

REPORT INFORMATION
  Report Type: 
  Country: None (occurrence: None)
  Receive Date: 20050311
  Receipt Date: 20050301
  Transmission Date: 20050727
  Serious: No
  Sender: FDA-Public Use
  Company Number: 2004-121771-NL

PATIENT
  Age: 32 Year
  Sex: Male

DRUGS (6)
  1. MIRTAZAPINE [Suspect]
     Indication: ANXIETY
     Dosage: 15 MG QD
     Route: 048
     Dates: end: 20040328
  2. MIRTAZAPINE [Suspect]
     Indication: PAIN
     Dosage: 15 MG QD
     Route: 048
     Dates: end: 20040328
  3. VENLAFAXINE HCL [Suspect]
     Indication: ANXIETY
     Dosage: 150 MG BID
     Route: 048
     Dates: start: 20020101
  4. VENLAFAXINE HCL [Suspect]
     Indication: PAIN
     Dosage: 150 MG BID
     Route: 048
     Dates: start: 20020101
  5. PROPRANOLOL [Concomitant]
  6. CLONAZEPAM [Concomitant]

REACTIONS (4)
  - ALANINE AMINOTRANSFERASE INCREASED [None]
  - ASPARTATE AMINOTRANSFERASE INCREASED [None]
  - BLOOD CREATINE PHOSPHOKINASE INCREASED [None]
  - MYALGIA [None]
